FAERS Safety Report 9841969 (Version 3)
Quarter: 2014Q4

REPORT INFORMATION
  Report Type: Spontaneous
  Country: US (occurrence: US)
  Receive Date: 20140124
  Receipt Date: 20141014
  Transmission Date: 20150529
  Serious: Yes (Hospitalization, Other)
  Sender: FDA-Public Use
  Company Number: US-009507513-1401USA010125

PATIENT
  Sex: Female
  Weight: 79.82 kg

DRUGS (1)
  1. NUVARING [Suspect]
     Active Substance: ETHINYL ESTRADIOL\ETONOGESTREL
     Indication: CONTRACEPTION
     Dosage: UNK
     Route: 067
     Dates: start: 201111, end: 201112

REACTIONS (5)
  - Asthma [Unknown]
  - Gastrooesophageal reflux disease [Unknown]
  - Polycystic ovaries [Unknown]
  - Pulmonary embolism [Unknown]
  - Depression [Unknown]

NARRATIVE: CASE EVENT DATE: 20120112
